FAERS Safety Report 8824649 (Version 2)
Quarter: 2013Q3

REPORT INFORMATION
  Report Type: Spontaneous
  Country: US (occurrence: US)
  Receive Date: 20121004
  Receipt Date: 20130730
  Transmission Date: 20140515
  Serious: Yes (Death, Hospitalization)
  Sender: FDA-Public Use
  Company Number: US-SANOFI-AVENTIS-2012SA072286

PATIENT
  Age: 81 Year
  Sex: Female
  Weight: 82.1 kg

DRUGS (16)
  1. MULTAQ [Suspect]
     Indication: PRODUCT USED FOR UNKNOWN INDICATION
     Route: 065
  2. MULTAQ [Suspect]
     Indication: PRODUCT USED FOR UNKNOWN INDICATION
     Route: 065
  3. ALBUMIN [Concomitant]
     Route: 065
  4. SOLU-MEDROL [Concomitant]
     Route: 065
  5. LACTULOSE [Concomitant]
     Route: 065
  6. SYNTHROID [Concomitant]
     Route: 065
  7. MYCOSTATIN [Concomitant]
     Dosage: POWDER
     Route: 065
  8. RIFAXIMIN [Concomitant]
     Route: 065
  9. MORPHINE SULFATE [Concomitant]
     Route: 065
  10. COUMADIN [Concomitant]
  11. LOVENOX [Concomitant]
  12. DILTIAZEM [Concomitant]
  13. BACTRIM [Concomitant]
  14. I.V. SOLUTIONS [Concomitant]
  15. FENTANYL [Concomitant]
     Route: 065
  16. VERSED [Concomitant]
     Route: 065

REACTIONS (8)
  - Hepatic failure [Fatal]
  - Jaundice [Fatal]
  - Mental status changes [Fatal]
  - Chromaturia [Fatal]
  - Blood bilirubin increased [Fatal]
  - Hepatitis cholestatic [Fatal]
  - Abdominal pain upper [Fatal]
  - Hepatorenal syndrome [Fatal]
